FAERS Safety Report 23787328 (Version 1)
Quarter: 2024Q2

REPORT INFORMATION
  Report Type: Spontaneous
  Country: US (occurrence: US)
  Receive Date: 20240426
  Receipt Date: 20240426
  Transmission Date: 20240716
  Serious: Yes (Hospitalization, Other)
  Sender: FDA-Public Use
  Company Number: US-HIKMA PHARMACEUTICALS-US-H14001-24-03400

PATIENT
  Age: 56 Year
  Sex: Male
  Weight: 74.8 kg

DRUGS (7)
  1. CYCLOPHOSPHAMIDE [Suspect]
     Active Substance: CYCLOPHOSPHAMIDE
     Indication: B-cell type acute leukaemia
     Dosage: 300 MILLIGRAM/SQ. METER, CYCLE 1, 3, 5, 7,
     Route: 042
     Dates: start: 20240208, end: 20240212
  2. CYTARABINE [Suspect]
     Active Substance: CYTARABINE
     Indication: B-cell type acute leukaemia
     Dosage: 100 MILLIGRAM, CYCLE 1-4
     Route: 037
     Dates: start: 20240208, end: 20240219
  3. DEXAMETHASONE [Suspect]
     Active Substance: DEXAMETHASONE
     Indication: B-cell type acute leukaemia
     Dosage: 40 MILLIGRAM, CYCLE 1, 3, 5, 7
     Route: 042
     Dates: start: 20240208, end: 20240221
  4. DOXORUBICIN [Suspect]
     Active Substance: DOXORUBICIN
     Indication: B-cell type acute leukaemia
     Dosage: 50 MILLIGRAM/SQ. METER, CYCLE 1, 3, 5, 7
     Route: 042
     Dates: start: 20240208
  5. METHOTREXATE [Suspect]
     Active Substance: METHOTREXATE
     Indication: B-cell type acute leukaemia
     Dosage: 12 MILLIGRAM, CYCLE 1-4
     Route: 037
     Dates: start: 20240208, end: 20240214
  6. RITUXIMAB [Suspect]
     Active Substance: RITUXIMAB
     Indication: B-cell type acute leukaemia
     Dosage: 375 MILLIGRAM/SQ. METER, CYCLE 1-4
     Route: 042
  7. VINCRISTINE SULFATE [Suspect]
     Active Substance: VINCRISTINE SULFATE
     Indication: B-cell type acute leukaemia
     Dosage: 2 MILLIGRAM, CYCLE: 1, 3, 5, 7
     Route: 042

REACTIONS (12)
  - Sepsis [Recovered/Resolved]
  - Pyrexia [Unknown]
  - Chills [Unknown]
  - Hypotension [Unknown]
  - Orthostatic hypotension [Unknown]
  - Tachycardia [Unknown]
  - Pain [Unknown]
  - Febrile neutropenia [Unknown]
  - Enterococcal infection [Unknown]
  - Enterobacter infection [Unknown]
  - Pathogen resistance [Unknown]
  - Escherichia infection [Unknown]

NARRATIVE: CASE EVENT DATE: 20240208
